FAERS Safety Report 11806035 (Version 3)
Quarter: 2016Q2

REPORT INFORMATION
  Report Type: Report from Study
  Country: JP (occurrence: JP)
  Receive Date: 20151207
  Receipt Date: 20160428
  Transmission Date: 20160815
  Serious: Yes (Other)
  Sender: FDA-Public Use
  Company Number: PHJP2015JP021541

PATIENT
  Age: 8 Year
  Sex: Female
  Weight: 25.8 kg

DRUGS (35)
  1. ACZ885 [Suspect]
     Active Substance: CANAKINUMAB
     Indication: MUCKLE-WELLS SYNDROME
     Dosage: 50 MG, UNK
     Route: 058
     Dates: start: 20141010
  2. ACZ885 [Suspect]
     Active Substance: CANAKINUMAB
     Dosage: 150 MG, UNK
     Route: 058
     Dates: start: 20150605
  3. NASEA [Concomitant]
     Active Substance: RAMOSETRON HYDROCHLORIDE
     Indication: PROPHYLAXIS
     Dosage: 1 DF, UNK
     Route: 048
  4. DIAMOX SEQUELS [Concomitant]
     Active Substance: ACETAZOLAMIDE
     Dosage: 250 MG, UNK
     Route: 048
     Dates: start: 20150410, end: 20150507
  5. TOCILIZUMAB [Concomitant]
     Active Substance: TOCILIZUMAB
     Indication: MUCKLE-WELLS SYNDROME
     Dosage: UNK
     Route: 065
     Dates: start: 20130122, end: 20140909
  6. ACZ885 [Suspect]
     Active Substance: CANAKINUMAB
     Dosage: 150 MG, UNK
     Route: 058
     Dates: start: 20150123
  7. PREDNISOLONE. [Suspect]
     Active Substance: PREDNISOLONE
     Dosage: 17 MG, UNK
     Route: 048
     Dates: start: 20150109, end: 20150112
  8. PREDNISOLONE. [Suspect]
     Active Substance: PREDNISOLONE
     Dosage: 17 MG, UNK
     Route: 048
     Dates: start: 20150425
  9. METHOTREXATE [Concomitant]
     Active Substance: METHOTREXATE
     Indication: MUCKLE-WELLS SYNDROME
     Dosage: 15 MG, UNK
     Route: 048
     Dates: end: 20150409
  10. RIPASUDIL HYDROCHLORIDE DIHYDRATE [Concomitant]
     Indication: GLAUCOMA
     Dosage: UNK
     Route: 047
  11. HYALEIN [Concomitant]
     Active Substance: HYALURONATE SODIUM
     Indication: MUCKLE-WELLS SYNDROME
     Dosage: UNK
     Route: 047
  12. TARIVID OPHTHALMIC [Concomitant]
     Active Substance: OFLOXACIN
     Indication: MUCKLE-WELLS SYNDROME
     Dosage: UNK
     Route: 047
  13. PREDNISOLONE. [Suspect]
     Active Substance: PREDNISOLONE
     Indication: MUCKLE-WELLS SYNDROME
     Dosage: 30 MG, UNK
     Route: 048
     Dates: end: 20150108
  14. ZYRTEC [Concomitant]
     Active Substance: CETIRIZINE HYDROCHLORIDE
     Indication: MUCKLE-WELLS SYNDROME
     Dosage: 3 MG, UNK
     Route: 048
  15. ACZ885 [Suspect]
     Active Substance: CANAKINUMAB
     Dosage: 100 MG, UNK
     Route: 058
     Dates: start: 20141205
  16. CALONAL [Concomitant]
     Active Substance: ACETAMINOPHEN
     Indication: MUCKLE-WELLS SYNDROME
     Dosage: 1400 MG, UNK
     Route: 048
  17. MORPHINE [Concomitant]
     Active Substance: MORPHINE
     Indication: MUCKLE-WELLS SYNDROME
     Dosage: 50 MG, UNK
     Route: 048
  18. COSOPT [Concomitant]
     Active Substance: DORZOLAMIDE HYDROCHLORIDE\TIMOLOL MALEATE
     Indication: GLAUCOMA
     Dosage: UNK
     Route: 047
  19. ACZ885 [Suspect]
     Active Substance: CANAKINUMAB
     Dosage: 150 MG, UNK
     Route: 058
     Dates: start: 20150226
  20. INFLIXIMAB [Concomitant]
     Active Substance: INFLIXIMAB
     Indication: MUCKLE-WELLS SYNDROME
     Dosage: UNK
     Route: 065
     Dates: start: 20110315, end: 20121222
  21. DAINATEC [Concomitant]
     Indication: GLAUCOMA
     Dosage: UNK
     Route: 047
  22. ACZ885 [Suspect]
     Active Substance: CANAKINUMAB
     Dosage: 150 MG, UNK
     Route: 058
     Dates: start: 20150731
  23. MUCOSTA [Concomitant]
     Active Substance: REBAMIPIDE
     Indication: PROPHYLAXIS
     Dosage: 100 MG, UNK
     Route: 048
  24. HEAVY MAGNESIUM OXIDE [Concomitant]
     Indication: PROPHYLAXIS
     Dosage: 0.7 G, UNK
     Route: 048
  25. ACZ885 [Suspect]
     Active Substance: CANAKINUMAB
     Dosage: 150 MG, UNK
     Route: 058
     Dates: start: 20150424
  26. PREDNISOLONE. [Suspect]
     Active Substance: PREDNISOLONE
     Dosage: 30 MG, UNK
     Route: 048
     Dates: start: 20150113, end: 20150424
  27. BAKTAR [Concomitant]
     Active Substance: SULFAMETHOXAZOLE\TRIMETHOPRIM
     Indication: PROPHYLAXIS
     Dosage: 1 DF, UNK
     Route: 048
  28. METHOTREXATE [Concomitant]
     Active Substance: METHOTREXATE
     Dosage: 7 MG, UNK
     Route: 048
     Dates: start: 20150410
  29. DIAMOX SEQUELS [Concomitant]
     Active Substance: ACETAZOLAMIDE
     Indication: GLAUCOMA
     Dosage: 375 MG, UNK
     Route: 048
     Dates: start: 20150107, end: 20150409
  30. TRAVATAN Z [Concomitant]
     Active Substance: TRAVOPROST
     Indication: GLAUCOMA
     Dosage: UNK
     Route: 047
  31. REBAMIPIDE [Concomitant]
     Active Substance: REBAMIPIDE
     Indication: PROPHYLAXIS
     Dosage: 100 MG, UNK
     Route: 048
  32. ACZ885 [Suspect]
     Active Substance: CANAKINUMAB
     Dosage: 150 MG, UNK
     Route: 058
     Dates: start: 20150918
  33. BRUFEN ^ABBOTT^ [Concomitant]
     Active Substance: IBUPROFEN
     Indication: MUCKLE-WELLS SYNDROME
     Dosage: 800 MG, UNK
     Route: 048
  34. GLUCONSAN K [Concomitant]
     Indication: PROPHYLAXIS
     Dosage: 0.25 G, UNK
     Route: 048
     Dates: start: 20150107, end: 20150507
  35. ALPHAGAN P [Concomitant]
     Active Substance: BRIMONIDINE TARTRATE
     Indication: GLAUCOMA
     Dosage: UNK
     Route: 047

REACTIONS (5)
  - Swelling face [Unknown]
  - Bronchitis [Recovered/Resolved]
  - Pericoronitis [Recovered/Resolved]
  - Subcutaneous abscess [Recovered/Resolved]
  - Perichondritis [Recovered/Resolved]

NARRATIVE: CASE EVENT DATE: 20150522
